FAERS Safety Report 8918652 (Version 3)
Quarter: 2013Q2

REPORT INFORMATION
  Report Type: Spontaneous
  Country: US (occurrence: US)
  Receive Date: 20121120
  Receipt Date: 20130529
  Transmission Date: 20140414
  Serious: Yes (Other)
  Sender: FDA-Public Use
  Company Number: US-ASTRAZENECA-2012SE19915

PATIENT
  Age: 43 Year
  Sex: Female

DRUGS (31)
  1. NEXIUM [Suspect]
     Indication: BARRETT^S OESOPHAGUS
     Route: 048
     Dates: start: 2008
  2. NEXIUM [Suspect]
     Indication: GASTROOESOPHAGEAL REFLUX DISEASE
     Route: 048
     Dates: start: 2008
  3. NEXIUM [Suspect]
     Indication: HIATUS HERNIA
     Route: 048
     Dates: start: 2008
  4. CRESTOR [Suspect]
     Indication: BLOOD CHOLESTEROL INCREASED
     Route: 048
     Dates: start: 2001
  5. CRESTOR [Suspect]
     Indication: HYPERLIPIDAEMIA
     Route: 048
     Dates: start: 2001
  6. CRESTOR [Suspect]
     Indication: BLOOD CHOLESTEROL INCREASED
     Route: 048
  7. CRESTOR [Suspect]
     Indication: HYPERLIPIDAEMIA
     Route: 048
  8. FERROUS SULFATE [Concomitant]
     Indication: ANAEMIA
     Dates: start: 20101026
  9. B12 [Concomitant]
     Indication: HYPOAESTHESIA
     Dates: start: 2007
  10. B1 [Concomitant]
     Indication: HYPOAESTHESIA
     Dates: start: 2007
  11. VIT E [Concomitant]
     Dates: start: 2007
  12. ALLEGRA [Concomitant]
     Indication: MULTIPLE ALLERGIES
     Dates: start: 2008
  13. LEXAPRO [Concomitant]
     Indication: ANXIETY
     Dates: start: 2008
  14. LEXAPRO [Concomitant]
     Indication: ANXIETY
     Dates: start: 20110526
  15. DURAGESIC PATCH [Concomitant]
     Indication: NECK PAIN
     Dosage: 100 MCG/HR, FOR 3 DAYS
     Dates: start: 200912
  16. DURAGESIC PATCH [Concomitant]
     Indication: PAIN IN EXTREMITY
     Dosage: 100 MCG/HR, FOR 3 DAYS
     Dates: start: 200912
  17. HCTZ [Concomitant]
     Indication: FLUID RETENTION
     Dates: start: 1994
  18. SYNTHROID [Concomitant]
     Indication: HYPOTHYROIDISM
     Dates: start: 1996
  19. KLONOPIN [Concomitant]
     Indication: ANXIETY
     Dates: start: 20101026
  20. KLONOPIN [Concomitant]
     Indication: MUSCLE SPASMS
     Dates: start: 20101026
  21. SENNS-S [Concomitant]
     Indication: CONSTIPATION
     Dosage: 50/8.6 MG, AT NIGHT
     Dates: start: 20101026
  22. TRAZODONE [Concomitant]
     Indication: ANXIETY
     Dates: start: 2010
  23. TRAZODONE [Concomitant]
     Indication: INSOMNIA
     Dates: start: 2010
  24. AMBIEN [Concomitant]
     Indication: INSOMNIA
     Dates: start: 201106
  25. FLEXERIL [Concomitant]
     Indication: MUSCLE SPASMS
     Dates: start: 200911
  26. DILAUDID [Concomitant]
     Indication: BREAKTHROUGH PAIN
     Dates: start: 201007
  27. TESSALON PERLE [Concomitant]
     Indication: COUGH
     Dosage: 1 TO 2 CAP, TID/ PRN
     Dates: start: 2008
  28. TESSALON PERLE [Concomitant]
     Indication: MULTIPLE ALLERGIES
     Dosage: 1 TO 2 CAP, TID/ PRN
     Dates: start: 2008
  29. NEURAGEN CREAM (OTC) [Concomitant]
     Indication: NEURALGIA
     Dosage: PER DIRECTIONS
     Dates: start: 2010
  30. VOLTAREN GEL [Concomitant]
     Indication: PAIN
     Dosage: PER DIRECTIONS, TID
     Dates: start: 201111
  31. EVLAX [Concomitant]
     Dates: start: 200911

REACTIONS (18)
  - Barrett^s oesophagus [Unknown]
  - Anxiety [Unknown]
  - Hypoaesthesia [Unknown]
  - Anaemia [Unknown]
  - Multiple allergies [Unknown]
  - Cough [Unknown]
  - Pain [Unknown]
  - Neuralgia [Unknown]
  - Neck pain [Unknown]
  - Breakthrough pain [Unknown]
  - Muscle spasms [Unknown]
  - Pain in extremity [Unknown]
  - Insomnia [Unknown]
  - Constipation [Unknown]
  - Hiatus hernia [Unknown]
  - Gastrooesophageal reflux disease [Unknown]
  - Gastrointestinal disorder [Unknown]
  - Off label use [Unknown]
